FAERS Safety Report 6105517-X (Version None)
Quarter: 2009Q1

REPORT INFORMATION
  Report Type: 
  Country: None (occurrence: None)
  Receive Date: 20090306
  Receipt Date: 20090304
  Transmission Date: 20090719
  Serious: Yes (Life-Threatening, Hospitalization)
  Sender: FDA-Public Use
  Company Number: A0771884A

PATIENT
  Age: 22 Year
  Sex: Female
  Weight: 50 kg

DRUGS (3)
  1. CEFUROXIME [Suspect]
     Indication: PROPHYLAXIS
     Dosage: 250MG TWICE PER DAY
     Route: 065
     Dates: start: 20081215, end: 20081225
  2. ALLERGY MEDICINE [Suspect]
  3. PIROXICAM [Concomitant]
     Dosage: 1TAB THREE TIMES PER DAY
     Dates: start: 20081215, end: 20081224

REACTIONS (3)
  - HYPOTENSION [None]
  - PRURITUS [None]
  - RASH [None]
